FAERS Safety Report 13267366 (Version 2)
Quarter: 2017Q3

REPORT INFORMATION
  Report Type: Report from Study
  Country: CA (occurrence: CA)
  Receive Date: 20170224
  Receipt Date: 20170810
  Transmission Date: 20171127
  Serious: Yes (Other)
  Sender: FDA-Public Use
  Company Number: CA-JNJFOC-20161215801

PATIENT
  Age: 47 Year
  Sex: Female
  Weight: 109.4 kg

DRUGS (2)
  1. REMICADE [Suspect]
     Active Substance: INFLIXIMAB
     Indication: CROHN^S DISEASE
     Route: 042
     Dates: start: 20170217
  2. REMICADE [Suspect]
     Active Substance: INFLIXIMAB
     Indication: CROHN^S DISEASE
     Route: 042

REACTIONS (13)
  - Off label use [Unknown]
  - Breast cancer [Recovering/Resolving]
  - Product use issue [Unknown]
  - Weight increased [Unknown]
  - Eschar [Recovering/Resolving]
  - Headache [Unknown]
  - Mammoplasty [Recovering/Resolving]
  - Post procedural complication [Recovering/Resolving]
  - Spinal osteoarthritis [Unknown]
  - Osteoarthritis [Unknown]
  - Infusion related reaction [Unknown]
  - Intervertebral disc protrusion [Unknown]
  - Nausea [Unknown]

NARRATIVE: CASE EVENT DATE: 20170109
